FAERS Safety Report 17307940 (Version 1)
Quarter: 2020Q1

REPORT INFORMATION
  Report Type: Spontaneous
  Country: TR (occurrence: TR)
  Receive Date: 20200123
  Receipt Date: 20200123
  Transmission Date: 20200409
  Serious: Yes (Death, Other)
  Sender: FDA-Public Use
  Company Number: TR-SA-2020SA016977

PATIENT
  Age: 86 Year
  Sex: Male

DRUGS (5)
  1. ACETYLCYSTEINE. [Concomitant]
     Active Substance: ACETYLCYSTEINE
     Indication: CHRONIC OBSTRUCTIVE PULMONARY DISEASE
     Dosage: 300 MG
  2. DIGOXIN. [Concomitant]
     Active Substance: DIGOXIN
     Indication: CARDIAC FAILURE
     Dosage: 0.25 MG
  3. METHYLPREDNISOLONE. [Concomitant]
     Active Substance: METHYLPREDNISOLONE
     Dosage: 40 MG
  4. CEFTRIAXONE. [Concomitant]
     Active Substance: CEFTRIAXONE
     Indication: INFECTION
     Dosage: 1 G
  5. ENOXAPARIN SODIUM. [Suspect]
     Active Substance: ENOXAPARIN SODIUM
     Indication: CARDIAC FAILURE
     Dosage: 6000 IU

REACTIONS (9)
  - Tachycardia [Fatal]
  - Retroperitoneal haematoma [Fatal]
  - Respiratory failure [Fatal]
  - Hypotension [Fatal]
  - Urinary retention [Fatal]
  - Abdominal pain [Fatal]
  - Full blood count decreased [Fatal]
  - Flank pain [Fatal]
  - Retroperitoneal mass [Fatal]
